FAERS Safety Report 19642021 (Version 1)
Quarter: 2021Q3

REPORT INFORMATION
  Report Type: Spontaneous
  Country: FR (occurrence: FR)
  Receive Date: 20210730
  Receipt Date: 20210730
  Transmission Date: 20211014
  Serious: Yes (Other)
  Sender: FDA-Public Use
  Company Number: FR-ALLERGAN-2127050US

PATIENT
  Sex: Male

DRUGS (2)
  1. FLUOXETINE HCL UNK [Suspect]
     Active Substance: FLUOXETINE HYDROCHLORIDE
     Indication: DEPRESSION
  2. OXAZEPAM A [Suspect]
     Active Substance: OXAZEPAM
     Indication: DEPRESSION
     Dosage: UNK

REACTIONS (3)
  - Off label use [Unknown]
  - Dystonia [Unknown]
  - Chorea [Recovered/Resolved]
